FAERS Safety Report 8844347 (Version 5)
Quarter: 2013Q1

REPORT INFORMATION
  Report Type: Spontaneous
  Country: JP (occurrence: JP)
  Receive Date: 20121017
  Receipt Date: 20130221
  Transmission Date: 20140127
  Serious: Yes (Other)
  Sender: FDA-Public Use
  Company Number: JP-JNJFOC-20121005799

PATIENT
  Age: 88 Year
  Sex: Female
  Weight: 53 kg

DRUGS (8)
  1. TRAMCET [Suspect]
     Indication: PAIN
     Dosage: 1 PER 1 DAY
     Route: 048
     Dates: start: 20120821, end: 20120904
  2. TRAMCET [Suspect]
     Indication: PAIN
     Dosage: PER 1 DAY
     Route: 048
     Dates: start: 20120626, end: 20120820
  3. NOVAMIN [Suspect]
     Indication: PROPHYLAXIS OF NAUSEA AND VOMITING
     Dosage: P.R.N
     Route: 048
     Dates: start: 20120626, end: 20120821
  4. NOVAMIN [Suspect]
     Indication: PROPHYLAXIS OF NAUSEA AND VOMITING
     Dosage: 1 PER 1 DAY
     Route: 048
     Dates: start: 20120621, end: 20120904
  5. RIVOTRIL [Concomitant]
     Indication: RESTLESS LEGS SYNDROME
     Dosage: 1 PER 1 DAY
     Route: 048
     Dates: start: 2012
  6. RIVOTRIL [Concomitant]
     Indication: RESTLESS LEGS SYNDROME
     Dosage: 1 PER 1 DAY
     Route: 048
     Dates: start: 20110603
  7. LYRICA [Concomitant]
     Indication: PAIN
     Dosage: 1 PER 1 DAY
     Route: 048
     Dates: start: 20120619
  8. LYRICA [Concomitant]
     Indication: PAIN
     Dosage: 1 PER 1 DAY
     Route: 048
     Dates: start: 20120603, end: 20120618

REACTIONS (6)
  - Gait disturbance [Unknown]
  - Dizziness [Unknown]
  - Feeling abnormal [Recovered/Resolved]
  - Dysphagia [Recovering/Resolving]
  - Dysarthria [Recovered/Resolved]
  - Inappropriate schedule of drug administration [Unknown]
